FAERS Safety Report 8216927-9 (Version None)
Quarter: 2012Q1

REPORT INFORMATION
  Report Type: 
  Country: None (occurrence: None)
  Receive Date: 20120318
  Receipt Date: 20120227
  Transmission Date: 20120608
  Serious: Yes (Death, Other)
  Sender: FDA-Public Use
  Company Number: IT-ROCHE-743934

PATIENT

DRUGS (11)
  1. CYTARABINE [Suspect]
     Indication: ACUTE PROMYELOCYTIC LEUKAEMIA
     Dosage: CONSOLIDATION: HIGH RISK: COURSE 1: DAYS 1-4.
     Route: 065
  2. CYTARABINE [Suspect]
     Dosage: CONSOLIDATION: HIGH RISK: COURSE 3: DAYS 1-5
     Route: 065
  3. PREDNISONE [Concomitant]
     Indication: PROPHYLAXIS
     Dosage: DURING INDUCTION THERAPY
  4. VESANOID [Suspect]
     Dosage: CONSOLIDATION THERAPY
     Route: 048
  5. THIOGUANINE [Suspect]
     Indication: ACUTE PROMYELOCYTIC LEUKAEMIA
     Dosage: CONSOLIDATION: HIGH RISK: COURSE 3: DAYS 1-5
     Route: 065
  6. VESANOID [Suspect]
     Indication: ACUTE PROMYELOCYTIC LEUKAEMIA
     Dosage: INDUCTION: UNTIL COMPLETE REMISSION OR FOR MAXIMUM 45 DAYS.
     Route: 048
  7. IDARUBICIN HCL [Suspect]
     Dosage: CONSOLIDATION COURSE 1: ON DAYS 1, 2, 3 AND 4
     Route: 042
  8. IDARUBICIN HCL [Suspect]
     Dosage: CONSOLIDATION THERAPY: COURSE 3: ON DAY 1
     Route: 042
  9. ETOPOSIDE [Suspect]
     Indication: ACUTE PROMYELOCYTIC LEUKAEMIA
     Dosage: CONSOLIDATION: HIGH RISK: COURSE 2: DAYS 1-5
     Route: 065
  10. MITOXANTRONE HYDROCHLORIDE [Suspect]
     Indication: ACUTE PROMYELOCYTIC LEUKAEMIA
     Dosage: CONSOLIDATION: HIGH AND LOW/INTERMEDIATE RISK: COURSE 2: DAYS 1-5
     Route: 065
  11. IDARUBICIN HCL [Suspect]
     Indication: ACUTE PROMYELOCYTIC LEUKAEMIA
     Dosage: INDUCTION THERAPY: ON DAYS 2, 4, 6 AND 8.
     Route: 042

REACTIONS (11)
  - DEATH [None]
  - INFECTION [None]
  - RENAL FAILURE [None]
  - GUILLAIN-BARRE SYNDROME [None]
  - NEUTROPENIA [None]
  - HAEMORRHAGE [None]
  - MYOCARDIAL INFARCTION [None]
  - EMBOLISM [None]
  - PYREXIA [None]
  - ACUTE PROMYELOCYTIC LEUKAEMIA DIFFERENTIATION SYNDROME [None]
  - BENIGN INTRACRANIAL HYPERTENSION [None]
